FAERS Safety Report 4339523-2 (Version None)
Quarter: 2004Q2

REPORT INFORMATION
  Report Type: 
  Country: None (occurrence: None)
  Receive Date: 20040412
  Receipt Date: 20040325
  Transmission Date: 20050107
  Serious: No
  Sender: FDA-Public Use
  Company Number: 2004US002062

PATIENT
  Sex: Female
  Weight: 87.5 kg

DRUGS (21)
  1. ALOXI [Suspect]
     Indication: PROPHYLAXIS OF NAUSEA AND VOMITING
     Dosage: 0.25 MG, SINGLE, INTRAVENOUS
     Route: 042
     Dates: start: 20040325, end: 20040325
  2. DEXAMETHASONE [Concomitant]
  3. SODIUM CHLORIDE [Concomitant]
  4. RELAFEN [Concomitant]
  5. LOTENSIN [Concomitant]
  6. ZYRTEC [Concomitant]
  7. PAXIL [Concomitant]
  8. PREVACID [Concomitant]
  9. PREDNISONE [Concomitant]
  10. COUMADIN [Concomitant]
  11. SOTALOL HCL [Concomitant]
  12. AMBIEN [Concomitant]
  13. SINGULAIR ^MERCK^ (MONTELUKAST SODIUM) [Concomitant]
  14. ADVAIR DISKUS (FLUTICASONE PROPIONATE, SALMETEROL XINAFOATE) [Concomitant]
  15. ALBUTEROL [Concomitant]
  16. RITUXIMAB (RITUXIMAB) [Concomitant]
  17. FLUDARA [Concomitant]
  18. CYTOXAN [Concomitant]
  19. ANZEMET (DOLASETRON MESILATE) [Concomitant]
  20. DECADRON [Concomitant]
  21. LASIX [Concomitant]

REACTIONS (5)
  - BLOOD PRESSURE INCREASED [None]
  - ERYTHEMA [None]
  - FEELING HOT [None]
  - HYPERSENSITIVITY [None]
  - PALPITATIONS [None]
